FAERS Safety Report 12412717 (Version 2)
Quarter: 2016Q3

REPORT INFORMATION
  Report Type: Spontaneous
  Country: BG (occurrence: BG)
  Receive Date: 20160527
  Receipt Date: 20160720
  Transmission Date: 20161109
  Serious: Yes (Hospitalization, Other)
  Sender: FDA-Public Use
  Company Number: BG-CELGENEUS-BGR-2016054296

PATIENT
  Age: 63 Year
  Sex: Male

DRUGS (5)
  1. AZACITIDINE. [Suspect]
     Active Substance: AZACITIDINE
     Route: 058
     Dates: start: 20160704
  2. AZACITIDINE. [Suspect]
     Active Substance: AZACITIDINE
     Indication: MYELODYSPLASTIC SYNDROME
     Route: 058
     Dates: start: 20160414, end: 20160420
  3. ENPRIL [Concomitant]
     Indication: HYPERTENSION
     Route: 048
     Dates: start: 201507
  4. FOLACID [Concomitant]
     Indication: THALASSAEMIA BETA
     Route: 048
     Dates: start: 201504
  5. ASPIRIN PROTECT [Concomitant]
     Active Substance: ASPIRIN
     Indication: THROMBOCYTOSIS
     Route: 048
     Dates: start: 201507

REACTIONS (2)
  - Off label use [Not Recovered/Not Resolved]
  - Diabetes insipidus [Not Recovered/Not Resolved]

NARRATIVE: CASE EVENT DATE: 20160414
